FAERS Safety Report 6678002-4 (Version None)
Quarter: 2010Q2

REPORT INFORMATION
  Report Type: 
  Country: None (occurrence: None)
  Receive Date: 20100412
  Receipt Date: 20100311
  Transmission Date: 20101027
  Serious: No
  Sender: FDA-Public Use
  Company Number: US-BAYER-201013166BCC

PATIENT
  Age: 66 Year
  Sex: Female
  Weight: 60 kg

DRUGS (6)
  1. ALEVE (CAPLET) [Suspect]
     Indication: SPONDYLITIS
     Dosage: UNIT DOSE: 220 MG
     Route: 048
     Dates: start: 20091219, end: 20091219
  2. ALEVE (CAPLET) [Suspect]
     Dosage: TOTAL DAILY DOSE: 440 MG  UNIT DOSE: 220 MG
     Route: 048
     Dates: start: 20091201, end: 20091201
  3. ALEVE (CAPLET) [Suspect]
     Dosage: TOOK 1 IN AM AND SOMETIMES ONE IN THE EVENING
     Route: 048
  4. FEMARA [Concomitant]
     Route: 065
  5. PURITANS PRIDE VITAMIN D [Concomitant]
     Route: 065
  6. PURITANS PRIDE EVENING PRIMROSE [Concomitant]
     Route: 065

REACTIONS (1)
  - CONSTIPATION [None]
